FAERS Safety Report 9112447 (Version 1)
Quarter: 2013Q1

REPORT INFORMATION
  Report Type: Spontaneous
  Country: US (occurrence: US)
  Receive Date: 20130211
  Receipt Date: 20130211
  Transmission Date: 20140127
  Serious: No
  Sender: FDA-Public Use
  Company Number: US-ASTRAZENECA-2013SE07046

PATIENT
  Age: 71 Year
  Sex: Female
  Weight: 45.4 kg

DRUGS (8)
  1. SYMBICORT [Suspect]
     Indication: EMPHYSEMA
     Dosage: 160 1 PUFF ,TWO TIMES A DAY
     Route: 055
     Dates: start: 20130125, end: 20130128
  2. SYMBICORT [Suspect]
     Indication: EMPHYSEMA
     Dosage: 160 1 PUFF ,TWO TIMES A DAY
     Route: 055
  3. ATENOLOL [Concomitant]
     Indication: CARDIAC DISORDER
  4. PROTONIX [Concomitant]
     Indication: GASTRIC DISORDER
  5. VALIUM [Concomitant]
     Indication: MENIERE^S DISEASE
  6. STEROID SHOTS [Concomitant]
     Indication: MENIERE^S DISEASE
  7. ANTIBIOTIC [Concomitant]
     Indication: PNEUMONIA
  8. BONIVA [Concomitant]

REACTIONS (4)
  - Haemoptysis [Unknown]
  - Pneumonia [Unknown]
  - Cough [Unknown]
  - Off label use [Unknown]
